FAERS Safety Report 10181614 (Version 1)
Quarter: 2014Q2

REPORT INFORMATION
  Report Type: Spontaneous
  Country: US (occurrence: US)
  Receive Date: 20140519
  Receipt Date: 20140519
  Transmission Date: 20141212
  Serious: No
  Sender: FDA-Public Use
  Company Number: US-009507513-1405USA003836

PATIENT
  Age: 96 Year
  Sex: Male

DRUGS (2)
  1. MIRALAX [Suspect]
     Indication: PRODUCT USED FOR UNKNOWN INDICATION
     Dosage: 17 G, UNKNOWN
     Route: 048
  2. MIRALAX [Suspect]
     Dosage: 8.5 G, UNKNOWN
     Route: 048

REACTIONS (2)
  - Underdose [Unknown]
  - Drug effect increased [Unknown]
